FAERS Safety Report 4614247-2 (Version None)
Quarter: 2005Q1

REPORT INFORMATION
  Report Type: 
  Country: None (occurrence: None)
  Receive Date: 20050321
  Receipt Date: 20050311
  Transmission Date: 20050727
  Serious: Yes (Hospitalization)
  Sender: FDA-Public Use
  Company Number: FR-ABBOTT-05P-056-0293868-00

PATIENT
  Age: 57 Year
  Sex: Female

DRUGS (6)
  1. DEPAKENE [Suspect]
     Indication: EPILEPSY
     Route: 048
     Dates: end: 20041229
  2. DEPAKENE [Suspect]
     Route: 048
     Dates: start: 20041230
  3. LAMOTRIGINE [Concomitant]
     Indication: EPILEPSY
     Route: 048
  4. CLOBAZAM [Concomitant]
     Indication: EPILEPSY
     Route: 048
  5. GABAPENTIN [Concomitant]
     Indication: EPILEPSY
     Route: 048
  6. OXCARBAZEPINE [Concomitant]
     Indication: EPILEPSY
     Route: 048

REACTIONS (5)
  - BALANCE DISORDER [None]
  - BRADYPHRENIA [None]
  - DRUG LEVEL ABOVE THERAPEUTIC [None]
  - GAIT DISTURBANCE [None]
  - SENSORY DISTURBANCE [None]
